FAERS Safety Report 7334585-2 (Version None)
Quarter: 2011Q1

REPORT INFORMATION
  Report Type: 
  Country: None (occurrence: None)
  Receive Date: 20110307
  Receipt Date: 20101021
  Transmission Date: 20110831
  Serious: No
  Sender: FDA-Public Use
  Company Number: A0888064A

PATIENT
  Age: 49 Year
  Sex: Female

DRUGS (4)
  1. ACETAMINOPHEN [Concomitant]
  2. MULTIVITAMIN [Concomitant]
  3. IRON PILLS [Concomitant]
  4. REQUIP [Suspect]
     Indication: RESTLESS LEGS SYNDROME
     Dosage: 25MG PER DAY
     Route: 048
     Dates: start: 20100629

REACTIONS (1)
  - DRUG INEFFECTIVE [None]
